FAERS Safety Report 24743716 (Version 3)
Quarter: 2025Q1

REPORT INFORMATION
  Report Type: Spontaneous
  Country: DE (occurrence: DE)
  Receive Date: 20241217
  Receipt Date: 20250213
  Transmission Date: 20250409
  Serious: Yes (Life-Threatening, Other)
  Sender: FRESENIUS KABI
  Company Number: DE-RECORDATI-2024009430

PATIENT
  Age: 5 Year
  Sex: Female
  Weight: 13 kg

DRUGS (19)
  1. IRINOTECAN [Suspect]
     Active Substance: IRINOTECAN
     Indication: Neuroblastoma
     Dates: start: 20241024, end: 20241029
  2. IRINOTECAN [Suspect]
     Active Substance: IRINOTECAN
     Indication: Neuroblastoma recurrent
     Dates: start: 20241114, end: 20241119
  3. IRINOTECAN [Suspect]
     Active Substance: IRINOTECAN
     Dates: start: 20240912, end: 20240917
  4. IRINOTECAN [Suspect]
     Active Substance: IRINOTECAN
     Dates: start: 20241004, end: 20241009
  5. THIOTEPA [Suspect]
     Active Substance: THIOTEPA
     Indication: Neuroblastoma
     Dates: start: 20241114, end: 20241119
  6. THIOTEPA [Suspect]
     Active Substance: THIOTEPA
     Indication: Neuroblastoma recurrent
     Dates: end: 20241029
  7. THIOTEPA [Suspect]
     Active Substance: THIOTEPA
     Dates: start: 20240912, end: 20240917
  8. THIOTEPA [Suspect]
     Active Substance: THIOTEPA
     Dates: start: 20241004, end: 20241009
  9. DINUTUXIMAB BETA [Suspect]
     Active Substance: DINUTUXIMAB BETA
     Indication: Neuroblastoma
     Dates: start: 20241114, end: 20241119
  10. DINUTUXIMAB BETA [Suspect]
     Active Substance: DINUTUXIMAB BETA
     Indication: Neuroblastoma recurrent
     Dates: end: 20241029
  11. DINUTUXIMAB BETA [Suspect]
     Active Substance: DINUTUXIMAB BETA
     Dates: start: 20240912, end: 20240917
  12. DINUTUXIMAB BETA [Suspect]
     Active Substance: DINUTUXIMAB BETA
     Dates: start: 20241004, end: 20241009
  13. GRANISETRON HYDROCHLORIDE [Concomitant]
     Active Substance: GRANISETRON HYDROCHLORIDE
     Indication: Product used for unknown indication
     Dosage: 0.5 MG, BID (TWICE DAILY)
  14. TEMODAL [Concomitant]
     Active Substance: TEMOZOLOMIDE
     Indication: Product used for unknown indication
     Route: 048
  15. METAMIZOLE [Concomitant]
     Active Substance: METAMIZOLE
     Indication: Product used for unknown indication
  16. METAMIZOLE [Concomitant]
     Active Substance: METAMIZOLE
     Dosage: 200 MG, QID (4 TIMES PER DAY) AS 30-MINUTE INFUSION
  17. COTRIMOXAZOLE [Concomitant]
     Active Substance: SULFAMETHOXAZOLE\TRIMETHOPRIM
     Indication: Product used for unknown indication
  18. GABAPENTIN [Concomitant]
     Active Substance: GABAPENTIN
     Indication: Product used for unknown indication
  19. Jonosteril [Concomitant]
     Indication: Product used for unknown indication

REACTIONS (3)
  - Hypoglycaemia [Recovered/Resolved]
  - Seizure [Recovered/Resolved]
  - Off label use [Recovered/Resolved]

NARRATIVE: CASE EVENT DATE: 20241114
